FAERS Safety Report 13111090 (Version 1)
Quarter: 2017Q1

REPORT INFORMATION
  Report Type: Report from Study
  Country: US (occurrence: US)
  Receive Date: 20170112
  Receipt Date: 20170112
  Transmission Date: 20170428
  Serious: Yes (Hospitalization)
  Sender: FDA-Public Use
  Company Number: US-BAXALTA-2016BLT008786

PATIENT
  Age: 70 Year
  Sex: Female
  Weight: 85.7 kg

DRUGS (3)
  1. AMLODIPINE [Concomitant]
     Active Substance: AMLODIPINE BESYLATE
     Indication: HYPERTENSION
  2. METOPROLOL. [Concomitant]
     Active Substance: METOPROLOL
     Indication: HYPERTENSION
  3. GAMMAGARD LIQUID [Suspect]
     Active Substance: HUMAN IMMUNOGLOBULIN G
     Indication: PRIMARY IMMUNODEFICIENCY SYNDROME
     Dosage: 30 G, EVERY 3 WK
     Route: 042
     Dates: start: 2004

REACTIONS (9)
  - Abdominal pain [Recovered/Resolved]
  - Blood potassium decreased [Unknown]
  - Hypertension [Unknown]
  - Acute kidney injury [Unknown]
  - Arteriosclerosis coronary artery [Unknown]
  - Hyponatraemia [Unknown]
  - Atrial fibrillation [Unknown]
  - Chronic kidney disease [Unknown]
  - Kidney infection [Unknown]

NARRATIVE: CASE EVENT DATE: 2016
